FAERS Safety Report 10059092 (Version 2)
Quarter: 2014Q2

REPORT INFORMATION
  Report Type: Spontaneous
  Country: US (occurrence: US)
  Receive Date: 20140404
  Receipt Date: 20140528
  Transmission Date: 20141212
  Serious: Yes (Other)
  Sender: FDA-Public Use
  Company Number: US-BAYER-2014-048032

PATIENT
  Sex: Female
  Weight: 98 kg

DRUGS (7)
  1. ALEVE CAPLET [Suspect]
     Indication: PAIN
     Dosage: 2 DF, ONCE
     Route: 048
  2. ALEVE CAPLET [Suspect]
     Indication: BACK PAIN
  3. PROTONIX [Concomitant]
     Indication: GASTROOESOPHAGEAL REFLUX DISEASE
     Dosage: 1 DF, QD
     Dates: start: 201006
  4. LASIX [Concomitant]
     Indication: DYSURIA
     Dosage: 1 DF, QD
     Dates: start: 200712
  5. NEURONTIN [Concomitant]
     Dosage: 1 DF, QD
     Dates: start: 200605
  6. BENICAR [Concomitant]
     Indication: BLOOD PRESSURE ABNORMAL
     Dosage: 1 DF, QD
     Dates: start: 200304
  7. ONGLYZA [Concomitant]
     Indication: DIABETES MELLITUS
     Dosage: 1 DF, QD
     Dates: start: 200503

REACTIONS (3)
  - Haematochezia [Not Recovered/Not Resolved]
  - Asthenia [None]
  - Rectal haemorrhage [Recovering/Resolving]
